FAERS Safety Report 24784587 (Version 1)
Quarter: 2024Q4

REPORT INFORMATION
  Report Type: Spontaneous
  Country: US (occurrence: US)
  Receive Date: 20241227
  Receipt Date: 20241227
  Transmission Date: 20250114
  Serious: No
  Sender: MERCK
  Company Number: US-009507513-2412USA009154

PATIENT
  Age: 63 Year
  Sex: Female

DRUGS (3)
  1. KEYTRUDA [Suspect]
     Active Substance: PEMBROLIZUMAB
     Indication: Pancreatic carcinoma
     Dosage: UNK
  2. OCTREOTIDE [Concomitant]
     Active Substance: OCTREOTIDE
     Indication: Pancreatic carcinoma
  3. EVEROLIMUS [Concomitant]
     Active Substance: EVEROLIMUS
     Indication: Pancreatic carcinoma

REACTIONS (1)
  - Product use issue [Unknown]
